APPROVED DRUG PRODUCT: PROMETHAZINE VC PLAIN
Active Ingredient: PHENYLEPHRINE HYDROCHLORIDE; PROMETHAZINE HYDROCHLORIDE
Strength: 5MG/5ML;6.25MG/5ML
Dosage Form/Route: SYRUP;ORAL
Application: A088815 | Product #001
Applicant: HR CENCI LABORATORIES INC
Approved: Nov 22, 1985 | RLD: No | RS: No | Type: DISCN